FAERS Safety Report 8503946-8 (Version None)
Quarter: 2012Q3

REPORT INFORMATION
  Report Type: 
  Country: None (occurrence: None)
  Receive Date: 20120702
  Receipt Date: 20120614
  Transmission Date: 20120928
  Serious: Yes (Hospitalization, Other)
  Sender: FDA-Public Use
  Company Number: 2012MA006856

PATIENT
  Age: 34 Month
  Sex: Female
  Weight: 11 kg

DRUGS (1)
  1. MINOXIDIL [Suspect]
     Dosage: 100 MG;X1;PO
     Route: 048

REACTIONS (6)
  - SINUS TACHYCARDIA [None]
  - ACCIDENTAL EXPOSURE [None]
  - TOXICITY TO VARIOUS AGENTS [None]
  - HYPOTENSION [None]
  - FLUSHING [None]
  - VOMITING [None]
